FAERS Safety Report 4747125-9 (Version None)
Quarter: 2005Q3

REPORT INFORMATION
  Report Type: 
  Country: None (occurrence: None)
  Receive Date: 20050815
  Receipt Date: 20050801
  Transmission Date: 20060218
  Serious: Yes (Death, Hospitalization, Other)
  Sender: FDA-Public Use
  Company Number: US_0504115898

PATIENT
  Sex: Male

DRUGS (6)
  1. ZYPREXA [Suspect]
     Indication: DEPRESSION
     Dosage: 10 MG DAY
     Dates: start: 19980601
  2. THIOTHIXENE [Concomitant]
  3. LISINOPRIL [Concomitant]
  4. DEPAKOTE [Concomitant]
  5. BELLADONNA EXTRACT W/PHENOBARBITONE [Concomitant]
  6. NAVANE (TIOXIENE) [Concomitant]

REACTIONS (4)
  - DIABETES MELLITUS NON-INSULIN-DEPENDENT [None]
  - DIABETIC COMA [None]
  - DIABETIC KETOACIDOSIS [None]
  - RENAL FAILURE ACUTE [None]
